FAERS Safety Report 18335546 (Version 1)
Quarter: 2020Q4

REPORT INFORMATION
  Report Type: Report from Study
  Country: US (occurrence: US)
  Receive Date: 20201001
  Receipt Date: 20201001
  Transmission Date: 20210113
  Serious: Yes (Hospitalization)
  Sender: FDA-Public Use
  Company Number: US-JNJFOC-A-NJ2019-189921

PATIENT
  Age: 7 Month
  Sex: Female
  Weight: 10.88 kg

DRUGS (22)
  1. CIPRODEX [Concomitant]
     Active Substance: CIPROFLOXACIN HYDROCHLORIDE\DEXAMETHASONE
  2. IPRATROPIUM [Concomitant]
     Active Substance: IPRATROPIUM
  3. LEVOTHYROXINE. [Concomitant]
     Active Substance: LEVOTHYROXINE
  4. SODIUM PHOSPHATE [Concomitant]
     Active Substance: SODIUM PHOSPHATE
  5. TRACLEER [Suspect]
     Active Substance: BOSENTAN
     Indication: PULMONARY ARTERIAL HYPERTENSION
     Dosage: 16 MG, BID
     Route: 048
  6. FLOVENT [Concomitant]
     Active Substance: FLUTICASONE PROPIONATE
     Dosage: UNK
  7. AMOXICILLIN. [Concomitant]
     Active Substance: AMOXICILLIN
  8. MULTIVITAMIN [Concomitant]
     Active Substance: VITAMINS
     Dosage: UNK
  9. MUPIROCIN. [Concomitant]
     Active Substance: MUPIROCIN
  10. FLUTICASONE. [Concomitant]
     Active Substance: FLUTICASONE
  11. NYSTOP [Concomitant]
     Active Substance: NYSTATIN
  12. PREDNISOLONE. [Concomitant]
     Active Substance: PREDNISOLONE
  13. HYDROCODONE [Concomitant]
     Active Substance: HYDROCODONE
  14. LASIX [Concomitant]
     Active Substance: FUROSEMIDE
     Dosage: UNK
  15. PREVACID [Concomitant]
     Active Substance: LANSOPRAZOLE
     Dosage: UNK
  16. SUCRALFATE. [Concomitant]
     Active Substance: SUCRALFATE
  17. TRACLEER [Suspect]
     Active Substance: BOSENTAN
     Dosage: 32 MG, BID
     Route: 048
     Dates: start: 201902, end: 2020
  18. FUROSEMIDE. [Concomitant]
     Active Substance: FUROSEMIDE
  19. LANSOPRAZOLE. [Concomitant]
     Active Substance: LANSOPRAZOLE
  20. ALBUTEROL. [Concomitant]
     Active Substance: ALBUTEROL
  21. NYSTATIN. [Concomitant]
     Active Substance: NYSTATIN
  22. SILDENAFIL. [Concomitant]
     Active Substance: SILDENAFIL
     Dosage: 9 MG

REACTIONS (5)
  - Off label use [Recovered/Resolved]
  - Respiratory failure [Not Recovered/Not Resolved]
  - Liver function test increased [Unknown]
  - Atrial septal defect repair [Recovered/Resolved]
  - Pulmonary arterial hypertension [Recovering/Resolving]
